FAERS Safety Report 9693004 (Version 1)
Quarter: 2013Q4

REPORT INFORMATION
  Report Type: Report from Study
  Country: LB (occurrence: LB)
  Receive Date: 20131118
  Receipt Date: 20131118
  Transmission Date: 20140711
  Serious: Yes (Life-Threatening, Other)
  Sender: FDA-Public Use
  Company Number: LB-SA-2013SA116989

PATIENT
  Age: 68 Year
  Sex: 0

DRUGS (4)
  1. INSULIN GLARGINE [Suspect]
     Indication: PRODUCT USED FOR UNKNOWN INDICATION
     Route: 058
  2. ACTOS [Concomitant]
  3. TRENTAL [Concomitant]
  4. SOLOSTAR [Concomitant]
     Indication: DEVICE THERAPY

REACTIONS (2)
  - Gait disturbance [Recovering/Resolving]
  - Hypoglycaemic unconsciousness [Recovering/Resolving]
